FAERS Safety Report 24754621 (Version 1)
Quarter: 2024Q4

REPORT INFORMATION
  Report Type: Spontaneous
  Country: PL (occurrence: PL)
  Receive Date: 20241219
  Receipt Date: 20241219
  Transmission Date: 20250114
  Serious: Yes (Hospitalization)
  Sender: TEVA
  Company Number: PL-TEVA-VS-3275143

PATIENT
  Age: 26 Year
  Sex: Female

DRUGS (18)
  1. SERTRALINE [Suspect]
     Active Substance: SERTRALINE HYDROCHLORIDE
     Indication: Depression
     Dosage: INITIALLY AT A DOSE OF 1X 50 MG, AND AFTER 10 DAYS THE DOSE WAS INCREASED TO 100 MG.
     Route: 065
  2. HYDROXYZINE [Suspect]
     Active Substance: HYDROXYZINE HYDROCHLORIDE
     Indication: Product used for unknown indication
     Route: 065
  3. FURAZIDINE [Suspect]
     Active Substance: FURAZIDINE
     Indication: Product used for unknown indication
     Route: 065
  4. IBUPROFEN [Suspect]
     Active Substance: IBUPROFEN
     Indication: Product used for unknown indication
     Route: 065
  5. FLUCONAZOLE [Suspect]
     Active Substance: FLUCONAZOLE
     Indication: Product used for unknown indication
     Route: 065
  6. ACETAMINOPHEN [Suspect]
     Active Substance: ACETAMINOPHEN
     Indication: Product used for unknown indication
     Route: 065
  7. CETIRIZINE [Suspect]
     Active Substance: CETIRIZINE HYDROCHLORIDE
     Indication: Product used for unknown indication
     Route: 065
  8. CIPROFLOXACIN [Suspect]
     Active Substance: CIPROFLOXACIN
     Indication: Product used for unknown indication
     Route: 065
  9. CLOTRIMAZOLE [Suspect]
     Active Substance: CLOTRIMAZOLE
     Indication: Product used for unknown indication
     Route: 065
  10. ACETAMINOPHEN\CODEINE [Suspect]
     Active Substance: ACETAMINOPHEN\CODEINE
     Indication: Product used for unknown indication
     Route: 065
  11. ALPRAZOLAM [Suspect]
     Active Substance: ALPRAZOLAM
     Indication: Product used for unknown indication
     Route: 065
  12. QUERCUS ROBUR FLOWER [Suspect]
     Active Substance: QUERCUS ROBUR FLOWER
     Indication: Product used for unknown indication
     Dosage: OAK BARK
     Route: 065
  13. NATAMYCIN [Suspect]
     Active Substance: NATAMYCIN
     Indication: Product used for unknown indication
     Route: 065
  14. CRANBERRY [Suspect]
     Active Substance: CRANBERRY
     Indication: Product used for unknown indication
     Route: 065
  15. AMOXICILLIN\CLAVULANIC ACID [Suspect]
     Active Substance: AMOXICILLIN\CLAVULANIC ACID
     Indication: Product used for unknown indication
     Route: 065
  16. GENTAMICIN [Suspect]
     Active Substance: GENTAMICIN
     Indication: Product used for unknown indication
     Route: 065
  17. TIANEPTINE [Suspect]
     Active Substance: TIANEPTINE
     Indication: Product used for unknown indication
     Route: 065
  18. HERBALS [Suspect]
     Active Substance: HERBALS
     Indication: Product used for unknown indication
     Route: 065

REACTIONS (4)
  - Persistent genital arousal disorder [Recovered/Resolved]
  - Drug ineffective [Unknown]
  - Drug interaction [Unknown]
  - Depression [Recovered/Resolved]
